FAERS Safety Report 5524810-2 (Version None)
Quarter: 2007Q4

REPORT INFORMATION
  Report Type: 
  Country: None (occurrence: None)
  Receive Date: 20071116
  Receipt Date: 20071106
  Transmission Date: 20080405
  Serious: Yes (Hospitalization, Other)
  Sender: FDA-Public Use
  Company Number: CHNY2007BR03124

PATIENT
  Age: 70 Year
  Sex: Female
  Weight: 96 kg

DRUGS (4)
  1. TRIMEDAL (NCH) (VITAMIN C, TROXERUTIN, ACETAMINOPHEN (PARACETAMOL), PH [Suspect]
     Indication: INFLUENZA
     Dosage: 1 DF, Q8H; 1DF; Q8H
     Dates: start: 20070101
  2. DEXTROMETHORPHAN HYDROBROMIDE [Suspect]
     Indication: COUGH
     Dosage: PRN
  3. AMIDALIN (BENZOCAINE, TYROTHRICIN) [Concomitant]
  4. DROPROPIZINE (DROPROPIZINE) [Concomitant]

REACTIONS (9)
  - AORTIC DILATATION [None]
  - CORONARY ARTERY DILATATION [None]
  - DRUG INEFFECTIVE [None]
  - HEART RATE INCREASED [None]
  - NEOPLASM [None]
  - PALPITATIONS [None]
  - PHARMACEUTICAL PRODUCT COMPLAINT [None]
  - SOMNOLENCE [None]
  - SPINAL OPERATION [None]
